FAERS Safety Report 10335593 (Version 1)
Quarter: 2014Q3

REPORT INFORMATION
  Report Type: Spontaneous
  Country: US (occurrence: US)
  Receive Date: 20140723
  Receipt Date: 20140723
  Transmission Date: 20150326
  Serious: No
  Sender: FDA-Public Use
  Company Number: US-UNITED THERAPEUTICS-UTC-046809

PATIENT
  Age: 34 Year
  Sex: Female
  Weight: 62.14 kg

DRUGS (3)
  1. REMODULIN [Suspect]
     Active Substance: TREPROSTINIL
     Dosage: 0.106 UG/KG/MIN
     Route: 041
     Dates: start: 20090605
  2. TRACLEER [Concomitant]
     Active Substance: BOSENTAN\BOSENTAN MONOHYDRATE
  3. REVATIO [Concomitant]
     Active Substance: SILDENAFIL CITRATE

REACTIONS (3)
  - Catheter site discharge [Unknown]
  - Drug dose omission [Unknown]
  - Asthenia [Unknown]

NARRATIVE: CASE EVENT DATE: 201403
